FAERS Safety Report 7393913-2 (Version None)
Quarter: 2011Q2

REPORT INFORMATION
  Report Type: 
  Country: None (occurrence: None)
  Receive Date: 20110405
  Receipt Date: 20110323
  Transmission Date: 20111010
  Serious: Yes (Other)
  Sender: FDA-Public Use
  Company Number: US-JNJFOC-20110310504

PATIENT
  Sex: Male
  Weight: 71.67 kg

DRUGS (23)
  1. NUCYNTA [Suspect]
     Dosage: 100MG ONCE A DAY (50 MG, 2 TABLETS DAILY AT NIGHT)
     Route: 048
  2. TOPAMAX [Suspect]
     Indication: NEUROPATHY PERIPHERAL
     Route: 048
  3. PROTONIX [Concomitant]
     Indication: GASTROOESOPHAGEAL REFLUX DISEASE
     Route: 048
  4. HYDROCHLOROTHIAZIDE [Concomitant]
     Indication: HYPERTENSION
     Route: 048
  5. CHONDROITIN [Concomitant]
     Indication: NUTRITIONAL SUPPORT
     Dosage: DAILY
     Route: 048
  6. BOSWELLIA [Concomitant]
     Indication: DRUG THERAPY
     Dosage: DAILY
     Route: 048
  7. GAMMA-LINOLENIC ACID [Concomitant]
     Indication: NUTRITIONAL SUPPORT
     Route: 048
  8. LOVAZA [Concomitant]
     Indication: NUTRITIONAL SUPPORT
     Route: 048
  9. GLUCOSAMINE [Concomitant]
     Indication: NUTRITIONAL SUPPORT
     Dosage: DAILY
     Route: 048
  10. ASPIRIN [Concomitant]
     Indication: CARDIAC DISORDER
     Route: 048
  11. TOPAMAX [Suspect]
     Route: 048
  12. VASOTEC [Concomitant]
     Indication: HYPERTENSION
     Route: 048
  13. AMARYL [Concomitant]
     Indication: DIABETES MELLITUS
     Route: 048
  14. MULTIVITAMINES [Concomitant]
     Indication: NUTRITIONAL SUPPORT
     Dosage: DAILY
     Route: 048
  15. NUCYNTA [Suspect]
     Indication: NEUROPATHY PERIPHERAL
     Dosage: 150 MG ONCE A DAY (50 MG, 3 TABLETS AT NIGHT)
     Route: 048
  16. ASCORBIC ACID [Concomitant]
     Indication: NUTRITIONAL SUPPORT
     Dosage: DAILY
     Route: 048
  17. COENZYME Q10 [Concomitant]
     Indication: ADVERSE DRUG REACTION
     Dosage: DAILY
     Route: 048
  18. ALPHA LIPOIC ACID [Concomitant]
     Indication: NUTRITIONAL SUPPORT
     Route: 048
  19. ACIDOPHILUS [Concomitant]
     Indication: NUTRITIONAL SUPPORT
     Dosage: DAILY
     Route: 048
  20. POTASSIUM [Concomitant]
     Indication: NUTRITIONAL SUPPORT
     Dosage: DAILY
     Route: 048
  21. TOPAMAX [Suspect]
     Route: 048
  22. LANTUS [Concomitant]
     Indication: DIABETES MELLITUS
     Dosage: 16 UNITS DAILY
     Route: 058
  23. MAGNESIUM [Concomitant]
     Indication: NUTRITIONAL SUPPORT
     Route: 048

REACTIONS (8)
  - NEUROPATHY PERIPHERAL [None]
  - CONFUSIONAL STATE [None]
  - DRUG INEFFECTIVE [None]
  - FATIGUE [None]
  - HYPERSOMNIA [None]
  - ABDOMINAL PAIN UPPER [None]
  - AMNESIA [None]
  - DIARRHOEA [None]
